FAERS Safety Report 4843473-2 (Version None)
Quarter: 2005Q4

REPORT INFORMATION
  Report Type: 
  Country: None (occurrence: None)
  Receive Date: 20051027
  Receipt Date: 20050824
  Transmission Date: 20060501
  Serious: No
  Sender: FDA-Public Use
  Company Number: ZICO001287

PATIENT
  Age: 51 Year
  Sex: Male

DRUGS (2)
  1. PRIALT [Suspect]
     Indication: DRUG USE FOR UNKNOWN INDICATION
     Dosage: 0.1458 MCG/HR. INTRATHECAL
     Route: 037
     Dates: start: 20050801, end: 20050818
  2. PAXIL [Concomitant]

REACTIONS (4)
  - CONFUSIONAL STATE [None]
  - DEPRESSION [None]
  - HYPERAESTHESIA [None]
  - MUSCULAR WEAKNESS [None]
